FAERS Safety Report 5519599-7 (Version None)
Quarter: 2007Q4

REPORT INFORMATION
  Report Type: 
  Country: None (occurrence: None)
  Receive Date: 20071116
  Receipt Date: 20071108
  Transmission Date: 20080405
  Serious: Yes (Other)
  Sender: FDA-Public Use
  Company Number: GB-AMGEN-UK252053

PATIENT
  Sex: Female

DRUGS (4)
  1. NEULASTA [Suspect]
     Indication: CHEMOTHERAPY
     Route: 058
     Dates: start: 20071031
  2. EPIRUBICIN [Concomitant]
     Route: 065
     Dates: start: 20071030
  3. FLUOROURACIL [Concomitant]
     Route: 065
     Dates: start: 20071030
  4. CYCLOPHOSPHAMIDE [Concomitant]
     Route: 065
     Dates: start: 20071030

REACTIONS (2)
  - DRUG INEFFECTIVE [None]
  - NEUTROPENIC SEPSIS [None]
